FAERS Safety Report 21658623 (Version 1)
Quarter: 2022Q4

REPORT INFORMATION
  Report Type: Spontaneous
  Country: CN (occurrence: CN)
  Receive Date: 20221129
  Receipt Date: 20221129
  Transmission Date: 20230113
  Serious: Yes (Hospitalization)
  Sender: FDA-Public Use
  Company Number: CN-PFIZER INC-PV202200111798

PATIENT
  Age: 7 Year
  Sex: Male
  Weight: 20.6 kg

DRUGS (3)
  1. CYTARABINE [Suspect]
     Active Substance: CYTARABINE
     Indication: Lymphoma
     Dosage: 0.83 G, 2X/DAY
     Route: 041
     Dates: start: 20221104, end: 20221107
  2. MERCAPTOPURINE [Suspect]
     Active Substance: MERCAPTOPURINE
     Indication: Lymphoma
     Dosage: 41.5 MG, 1X/DAY
     Route: 048
     Dates: start: 20221104, end: 20221110
  3. CYCLOPHOSPHAMIDE [Suspect]
     Active Substance: CYCLOPHOSPHAMIDE
     Indication: Lymphoma
     Dosage: 0.83 G, 1X/DAY
     Route: 041
     Dates: start: 20221104, end: 20221104

REACTIONS (1)
  - Myelosuppression [Recovering/Resolving]

NARRATIVE: CASE EVENT DATE: 20221112
